FAERS Safety Report 4355850-7 (Version None)
Quarter: 2004Q2

REPORT INFORMATION
  Report Type: 
  Country: None (occurrence: None)
  Receive Date: 20040505
  Receipt Date: 20040421
  Transmission Date: 20050107
  Serious: Yes (Other)
  Sender: FDA-Public Use
  Company Number: 2004-00223FE

PATIENT
  Age: 30 Year
  Sex: Female

DRUGS (3)
  1. PENTASA [Suspect]
     Indication: COLITIS ULCERATIVE
     Dosage: 2250 MG/1500 MG/1000 MG PER RECTAL
     Route: 054
     Dates: start: 20030223, end: 20030315
  2. PENTASA [Suspect]
     Indication: COLITIS ULCERATIVE
     Dosage: 2250 MG/1500 MG/1000 MG PER RECTAL
     Route: 054
     Dates: start: 20040115, end: 20040222
  3. PENTASA [Suspect]
     Indication: COLITIS ULCERATIVE
     Dosage: 2250 MG/1500 MG/1000 MG PER RECTAL
     Route: 054
     Dates: start: 20040115, end: 20040222

REACTIONS (1)
  - EOSINOPHILIC PNEUMONIA [None]
